FAERS Safety Report 12921807 (Version 1)
Quarter: 2016Q4

REPORT INFORMATION
  Report Type: Spontaneous
  Country: ES (occurrence: ES)
  Receive Date: 20161108
  Receipt Date: 20161108
  Transmission Date: 20170207
  Serious: Yes (Hospitalization)
  Sender: FDA-Public Use
  Company Number: PHHY2016ES148988

PATIENT
  Age: 56 Year
  Sex: Male

DRUGS (7)
  1. GLICLAZIDE [Suspect]
     Active Substance: GLICLAZIDE
     Indication: DIABETES MELLITUS
     Dosage: 30 MG, QD
     Route: 048
     Dates: start: 20160601, end: 20161008
  2. BELOKEN [Suspect]
     Active Substance: METOPROLOL TARTRATE
     Indication: HYPERTENSION
     Dosage: 95 MG, QD
     Route: 048
     Dates: start: 20130801, end: 20161008
  3. GALVUS [Suspect]
     Active Substance: VILDAGLIPTIN
     Indication: DIABETES MELLITUS
     Dosage: 50 MG, BID
     Route: 048
     Dates: start: 20160630, end: 20161008
  4. TEVETEN [Suspect]
     Active Substance: EPROSARTAN MESYLATE
     Indication: HYPERTENSION
     Dosage: 60012.5 MG, QD
     Route: 048
     Dates: start: 20120817, end: 20161008
  5. TEVETEN [Suspect]
     Active Substance: EPROSARTAN MESYLATE
     Dosage: 12.5 MG, QD
     Route: 048
  6. METFORMIN [Suspect]
     Active Substance: METFORMIN HYDROCHLORIDE
     Indication: DIABETES MELLITUS
     Dosage: 850 MG, TID
     Route: 048
     Dates: start: 20160601, end: 20161008
  7. AMLODIPINE [Suspect]
     Active Substance: AMLODIPINE BESYLATE
     Indication: HYPERTENSION
     Dosage: 10 MG, QD
     Route: 048
     Dates: start: 20120817, end: 20161008

REACTIONS (5)
  - Nausea [Recovered/Resolved]
  - Jaundice [Not Recovered/Not Resolved]
  - Decreased appetite [Recovered/Resolved]
  - Malaise [Recovered/Resolved]
  - Dizziness [Recovered/Resolved]

NARRATIVE: CASE EVENT DATE: 201607
